FAERS Safety Report 9883866 (Version 3)
Quarter: 2014Q1

REPORT INFORMATION
  Report Type: Report from Study
  Country: US (occurrence: US)
  Receive Date: 20140210
  Receipt Date: 20140310
  Transmission Date: 20141002
  Serious: Yes (Hospitalization, Other)
  Sender: FDA-Public Use
  Company Number: US-ROCHE-1344616

PATIENT
  Age: 88 Year
  Sex: Female

DRUGS (6)
  1. LUCENTIS [Suspect]
     Indication: RETINAL VEIN OCCLUSION
     Dosage: LEFT EYE
     Route: 065
     Dates: end: 20140103
  2. LUCENTIS [Suspect]
     Route: 050
     Dates: start: 20130708
  3. LUCENTIS [Suspect]
     Route: 050
     Dates: start: 20130726
  4. LUCENTIS [Suspect]
     Route: 050
     Dates: start: 20130909
  5. LUCENTIS [Suspect]
     Dosage: LEFT EYE
     Route: 050
     Dates: start: 20140104
  6. AVASTIN [Suspect]
     Indication: PRODUCT USED FOR UNKNOWN INDICATION
     Dosage: LEFT EYE
     Route: 050
     Dates: start: 20140104

REACTIONS (7)
  - Eye haemorrhage [Unknown]
  - Cataract operation [Unknown]
  - Drug ineffective [Unknown]
  - Intraocular pressure increased [Unknown]
  - Glaucoma [Unknown]
  - Cataract [Unknown]
  - Visual acuity reduced [Unknown]
